FAERS Safety Report 4333630-6 (Version None)
Quarter: 2004Q2

REPORT INFORMATION
  Report Type: 
  Country: None (occurrence: None)
  Receive Date: 20040405
  Receipt Date: 20040405
  Transmission Date: 20050107
  Serious: Yes (Hospitalization)
  Sender: FDA-Public Use
  Company Number: None

PATIENT
  Sex: Male
  Weight: 67.8128 kg

DRUGS (16)
  1. TAXOL [Suspect]
     Indication: NON-SMALL CELL LUNG CANCER STAGE IV
     Dosage: 366MG IV - Q 3 WKS
     Route: 042
     Dates: start: 20040319
  2. CARBOPLATIN [Suspect]
     Indication: NON-SMALL CELL LUNG CANCER STAGE IV
     Dosage: 493 MG IV Q 3 WKS
     Route: 042
     Dates: start: 20040319
  3. COLESTID [Concomitant]
  4. LABETALOL HCL [Concomitant]
  5. HYZAAR [Concomitant]
  6. PROTONIX [Concomitant]
  7. REGLAN [Concomitant]
  8. LIPITOR [Concomitant]
  9. PHENERGAN [Concomitant]
  10. NASACORT [Concomitant]
  11. COMPAZINE [Concomitant]
  12. KYTRIL [Concomitant]
  13. MD ANDERSON MOUTHWASH [Concomitant]
  14. ZOLOFT [Concomitant]
  15. KEFLEX [Concomitant]
  16. LORTAB [Concomitant]

REACTIONS (6)
  - ASTHENIA [None]
  - DYSPHAGIA [None]
  - ERYTHEMA [None]
  - FEBRILE NEUTROPENIA [None]
  - INFUSION SITE REACTION [None]
  - STOMATITIS [None]
